FAERS Safety Report 18149775 (Version 1)
Quarter: 2020Q3

REPORT INFORMATION
  Report Type: Report from Study
  Country: US (occurrence: US)
  Receive Date: 20200814
  Receipt Date: 20200814
  Transmission Date: 20201103
  Serious: Yes (Hospitalization, Other)
  Sender: FDA-Public Use
  Company Number: US-BAXTER-2020BAX016523

PATIENT
  Age: 9 Year
  Sex: Female
  Weight: 29.9 kg

DRUGS (8)
  1. VINCRISTINE SULFATE. [Suspect]
     Active Substance: VINCRISTINE SULFATE
     Dosage: LAST DOSE ADMINISTERED PRIOR TO AE, TOTAL DOSE IN CYCLE 3: 1.6 MG
     Route: 042
     Dates: start: 20200721, end: 20200721
  2. TEMSIROLIMUS. [Suspect]
     Active Substance: TEMSIROLIMUS
     Indication: ALVEOLAR RHABDOMYOSARCOMA
     Dosage: IV OVER 30?60 MINUTES ON DAYS 1, 8, AND 15
     Route: 042
     Dates: start: 20200616
  3. DACTINOMYCIN [Suspect]
     Active Substance: DACTINOMYCIN
     Indication: ALVEOLAR RHABDOMYOSARCOMA
     Dosage: IV OVER 1?5 MINUTES ON DAY 1 OF CYCLES 1 AND 3, LAST DOSE PRIOR TO AE, TOTAL DOSE IN CYCLE 3: 1.6MG
     Route: 042
     Dates: start: 20200616, end: 20200616
  4. VINCRISTINE SULFATE. [Suspect]
     Active Substance: VINCRISTINE SULFATE
     Indication: ALVEOLAR RHABDOMYOSARCOMA
     Dosage: IV OVER 1 MINUTE OR INFUSION VIA MINIBAG ON DAYS 1, 8, AND 15
     Route: 042
     Dates: start: 20200616
  5. CAMPTOSAR [Suspect]
     Active Substance: IRINOTECAN HYDROCHLORIDE
     Dosage: LAST DOSE ADMINISTERED PRIOR TO AE, TOTAL DOSE IN CYCLE 3: 0 MG
     Route: 042
     Dates: start: 20200710, end: 20200710
  6. TEMSIROLIMUS. [Suspect]
     Active Substance: TEMSIROLIMUS
     Dosage: LAST DOSE ADMINISTERED PRIOR TO AE, TOTAL DOSE IN CYCLE 3: 0 MG
     Route: 042
     Dates: start: 20200721, end: 20200721
  7. CAMPTOSAR [Suspect]
     Active Substance: IRINOTECAN HYDROCHLORIDE
     Indication: ALVEOLAR RHABDOMYOSARCOMA
     Dosage: IV OVER 90 MINUTES ON DAYS 1?5 OF CYCLES 2
     Route: 042
     Dates: start: 20200616
  8. CYCLOPHOSPHAMIDE FOR INJECTION, USP [Suspect]
     Active Substance: CYCLOPHOSPHAMIDE
     Indication: ALVEOLAR RHABDOMYOSARCOMA
     Dosage: IV OVER 60 MINUTES ON DAY 1 OF CYCLES 1 AND 3, LAST DOSE PRIOR TO AE, TOTAL DOSE IN CYCLE 3: 1296MG
     Route: 042
     Dates: start: 20200616, end: 20200616

REACTIONS (3)
  - Vomiting [Not Recovered/Not Resolved]
  - Dehydration [Not Recovered/Not Resolved]
  - Diarrhoea [Not Recovered/Not Resolved]

NARRATIVE: CASE EVENT DATE: 20200728
